FAERS Safety Report 11608235 (Version 1)
Quarter: 2015Q4

REPORT INFORMATION
  Report Type: Spontaneous
  Country: US (occurrence: US)
  Receive Date: 20151007
  Receipt Date: 20151007
  Transmission Date: 20160304
  Serious: Yes (Other)
  Sender: FDA-Public Use
  Company Number: US-UCBSA-2015031061

PATIENT
  Age: 22 Year
  Sex: Female
  Weight: 100 kg

DRUGS (5)
  1. KEPPRA XR [Suspect]
     Active Substance: LEVETIRACETAM
     Indication: EPILEPSY
     Dosage: UNKNOWN DOSE
     Route: 048
     Dates: start: 2008
  2. KEPPRA XR [Suspect]
     Active Substance: LEVETIRACETAM
     Dosage: 2500 MG, ONCE DAILY (EVERY NIGHT AT BEDTIME)
     Route: 048
     Dates: start: 201008, end: 201105
  3. SYNTHROID [Concomitant]
     Active Substance: LEVOTHYROXINE SODIUM
     Indication: PRODUCT USED FOR UNKNOWN INDICATION
     Dosage: 100 ?G, ONCE DAILY (QAM)
     Route: 048
  4. XANAX [Concomitant]
     Active Substance: ALPRAZOLAM
     Indication: ANXIETY
     Dosage: 0.5 MG, AS NEEDED (PRN)
  5. ZOLOFT [Concomitant]
     Active Substance: SERTRALINE HYDROCHLORIDE
     Indication: PRODUCT USED FOR UNKNOWN INDICATION
     Dosage: UNK

REACTIONS (6)
  - Premature delivery [Unknown]
  - Pregnancy on contraceptive [Unknown]
  - Panic attack [Not Recovered/Not Resolved]
  - Seizure [Recovered/Resolved]
  - Anxiety [Not Recovered/Not Resolved]
  - Pregnancy [Unknown]

NARRATIVE: CASE EVENT DATE: 2008
